FAERS Safety Report 8025840-1 (Version None)
Quarter: 2012Q1

REPORT INFORMATION
  Report Type: 
  Country: None (occurrence: None)
  Receive Date: 20120105
  Receipt Date: 20111227
  Transmission Date: 20120608
  Serious: Yes (Other)
  Sender: FDA-Public Use
  Company Number: US-ASTRAZENECA-2010SE16240

PATIENT
  Age: 84 Year
  Sex: Male

DRUGS (1)
  1. SYMBICORT [Suspect]
     Dosage: 640 MCG BID
     Route: 055

REACTIONS (3)
  - DYSPNOEA [None]
  - TRANSIENT ISCHAEMIC ATTACK [None]
  - MEMORY IMPAIRMENT [None]
